FAERS Safety Report 13660545 (Version 3)
Quarter: 2017Q3

REPORT INFORMATION
  Report Type: Spontaneous
  Country: GB (occurrence: GB)
  Receive Date: 20170616
  Receipt Date: 20170724
  Transmission Date: 20171127
  Serious: Yes (Hospitalization)
  Sender: FDA-Public Use
  Company Number: GB-009507513-1706GBR005317

PATIENT
  Sex: Female

DRUGS (2)
  1. NOXAFIL [Suspect]
     Active Substance: POSACONAZOLE
     Dosage: 100 MG, ON TUESDAY, THURDAY, FRIDAY, SATURDAY AND SUNDAY
     Route: 048
  2. NOXAFIL [Suspect]
     Active Substance: POSACONAZOLE
     Dosage: 200 MG, ON MONDAY AND WEDNESDAY
     Route: 048

REACTIONS (2)
  - Infection [Unknown]
  - Confusional state [Unknown]
